FAERS Safety Report 16887486 (Version 2)
Quarter: 2019Q4

REPORT INFORMATION
  Report Type: Spontaneous
  Country: DE (occurrence: DE)
  Receive Date: 20191004
  Receipt Date: 20191029
  Transmission Date: 20200122
  Serious: Yes (Other)
  Sender: FDA-Public Use
  Company Number: DE-AUROBINDO-AUR-APL-2019-063900

PATIENT
  Sex: Female

DRUGS (1)
  1. PANTOPRAZOL PUREN GASTRO RESISTANT TABLET 40 MG [Suspect]
     Active Substance: PANTOPRAZOLE SODIUM
     Indication: PRODUCT USED FOR UNKNOWN INDICATION
     Dosage: UNK,DISCONTINUED AND TAKEN AGAIN AFTER 5 DAYS
     Route: 048

REACTIONS (5)
  - Headache [Recovered/Resolved]
  - Gingival recession [Recovered/Resolved]
  - Acne [Recovered/Resolved]
  - Herpes virus infection [Recovered/Resolved]
  - Vitreous detachment [Unknown]
